FAERS Safety Report 15974487 (Version 2)
Quarter: 2019Q1

REPORT INFORMATION
  Report Type: Spontaneous
  Country: AE (occurrence: AE)
  Receive Date: 20190218
  Receipt Date: 20190228
  Transmission Date: 20190418
  Serious: Yes (Hospitalization, Other)
  Sender: FDA-Public Use
  Company Number: AE-AMGEN-ARESP2019012271

PATIENT
  Age: 49 Year
  Sex: Female

DRUGS (7)
  1. DULAGLUTIDE. [Concomitant]
     Active Substance: DULAGLUTIDE
     Indication: DIABETES MELLITUS
     Dosage: 1.5 MG, WEEKLY, SINCE 3 MONTHS
     Route: 058
  2. ROSUVASTATIN CALCIUM. [Concomitant]
     Active Substance: ROSUVASTATIN CALCIUM
     Indication: HYPERLIPIDAEMIA
     Dosage: 10 MG, 1X/DAY SINCE ONE YEAR
  3. TRAMAL RETARD [Concomitant]
     Active Substance: TRAMADOL
     Indication: PAIN MANAGEMENT
     Dosage: 100 MG (2X/DAY AS NEEDED), DURATION 14 DAYS
     Route: 048
     Dates: end: 20190214
  4. ENBREL [Suspect]
     Active Substance: ETANERCEPT
     Indication: PSORIATIC ARTHROPATHY
     Dosage: 50 MG, ONCE EVERY 10 DAYS
     Route: 058
     Dates: start: 20170912
  5. METFORMIN HYDROCHLORIDE. [Concomitant]
     Active Substance: METFORMIN HYDROCHLORIDE
     Indication: DIABETES MELLITUS
     Dosage: 1000 MG (EVERY 12 HRS) SINCE ONE YEAR
     Route: 048
  6. OXYTOCIN. [Concomitant]
     Active Substance: OXYTOCIN
     Indication: HAEMORRHAGE
     Dosage: 5 MG, (2X/DAY AS NEEDED), DURATION 10 DAYS
     Route: 048
     Dates: end: 20190210
  7. CELEBREX [Concomitant]
     Active Substance: CELECOXIB
     Indication: PAIN MANAGEMENT
     Dosage: 200 MG, 2X/DAY (DURATION 14 DAYS)
     Route: 048
     Dates: end: 20190214

REACTIONS (2)
  - Product use issue [Unknown]
  - Tendon rupture [Recovered/Resolved]

NARRATIVE: CASE EVENT DATE: 20190120
